FAERS Safety Report 26072704 (Version 1)
Quarter: 2025Q4

REPORT INFORMATION
  Report Type: Spontaneous
  Country: EU (occurrence: EU)
  Receive Date: 20251120
  Receipt Date: 20251120
  Transmission Date: 20260118
  Serious: Yes (Other)
  Sender: ABBVIE
  Company Number: EU-ABBVIE-6546967

PATIENT
  Age: 58 Year
  Sex: Female

DRUGS (1)
  1. DEXAMETHASONE [Suspect]
     Active Substance: DEXAMETHASONE
     Indication: Chorioretinitis
     Dosage: TIME INTERVAL: AS NECESSARY
     Route: 050
     Dates: start: 202504

REACTIONS (7)
  - Vitreous opacities [Recovering/Resolving]
  - Vitreous haemorrhage [Recovering/Resolving]
  - Petechiae [Recovering/Resolving]
  - White matter lesion [Unknown]
  - Optic neuritis [Unknown]
  - Myelin oligodendrocyte glycoprotein antibody-associated disease [Unknown]
  - Eales^ disease [Unknown]

NARRATIVE: CASE EVENT DATE: 20250101
